FAERS Safety Report 4453609-3 (Version None)
Quarter: 2004Q3

REPORT INFORMATION
  Report Type: 
  Country: None (occurrence: None)
  Receive Date: 20040920
  Receipt Date: 20040908
  Transmission Date: 20050211
  Serious: Yes (Death, Life-Threatening)
  Sender: FDA-Public Use
  Company Number: JP-BRISTOL-MYERS SQUIBB COMPANY-12698882

PATIENT
  Age: 6 Decade
  Sex: Female

DRUGS (2)
  1. IFOMIDE [Suspect]
     Indication: CERVIX CARCINOMA
     Route: 041
     Dates: start: 20040812, end: 20040814
  2. AQUPLA [Suspect]
     Indication: CERVIX CARCINOMA
     Route: 041
     Dates: start: 20040812, end: 20040812

REACTIONS (3)
  - BONE MARROW DEPRESSION [None]
  - CLOSTRIDIAL INFECTION [None]
  - ENDOTOXIC SHOCK [None]
